FAERS Safety Report 6536643-9 (Version None)
Quarter: 2010Q1

REPORT INFORMATION
  Report Type: 
  Country: None (occurrence: None)
  Receive Date: 20100113
  Receipt Date: 20100107
  Transmission Date: 20100710
  Serious: Yes (Hospitalization)
  Sender: FDA-Public Use
  Company Number: US-JNJFOC-20100102349

PATIENT
  Sex: Female
  Weight: 48.1 kg

DRUGS (4)
  1. INFLIXIMAB [Suspect]
     Indication: ANORECTAL DISORDER
     Route: 042
  2. 5-ASA [Concomitant]
  3. METRONIDAZOLE [Concomitant]
  4. CIPRO [Concomitant]

REACTIONS (1)
  - PERIRECTAL ABSCESS [None]
